FAERS Safety Report 9270441 (Version 1)
Quarter: 2013Q2

REPORT INFORMATION
  Report Type: Spontaneous
  Country: US (occurrence: US)
  Receive Date: 20130503
  Receipt Date: 20130503
  Transmission Date: 20140414
  Serious: No
  Sender: FDA-Public Use
  Company Number: US-MUTUAL PHARMACEUTICAL COMPANY, INC.-DXCY20130003

PATIENT
  Sex: Female
  Weight: 74.46 kg

DRUGS (5)
  1. DOXYCYCLINE TABLETS [Suspect]
     Route: 048
     Dates: start: 200803, end: 200803
  2. DOXYCYCLINE TABLETS [Suspect]
     Route: 048
     Dates: start: 201209, end: 201209
  3. ATENOLOL [Concomitant]
     Route: 048
     Dates: start: 2009
  4. MULTIVITAMIN [Concomitant]
     Route: 048
     Dates: start: 2012
  5. VITAMIN D [Concomitant]
     Route: 048

REACTIONS (3)
  - Polymorphic light eruption [None]
  - Alopecia [Not Recovered/Not Resolved]
  - Photosensitivity reaction [None]
